FAERS Safety Report 16401158 (Version 1)
Quarter: 2019Q2

REPORT INFORMATION
  Report Type: Spontaneous
  Country: US (occurrence: US)
  Receive Date: 20190606
  Receipt Date: 20190606
  Transmission Date: 20190711
  Serious: No
  Sender: FDA-Public Use
  Company Number: US-PTC THERAPEUTICS, INC.-US-2019PTC000447

PATIENT
  Sex: Male
  Weight: 69.84 kg

DRUGS (1)
  1. EMFLAZA [Suspect]
     Active Substance: DEFLAZACORT
     Indication: DUCHENNE MUSCULAR DYSTROPHY
     Dosage: 36/39 MG ALTERNATING DOSE, EVERY OTHER DAY
     Route: 048
     Dates: start: 20171123

REACTIONS (2)
  - Gait inability [Unknown]
  - Weight increased [Unknown]

NARRATIVE: CASE EVENT DATE: 2019
